FAERS Safety Report 21707517 (Version 1)
Quarter: 2022Q4

REPORT INFORMATION
  Report Type: Spontaneous
  Country: IT (occurrence: IT)
  Receive Date: 20221209
  Receipt Date: 20221209
  Transmission Date: 20230113
  Serious: Yes (Other)
  Sender: FDA-Public Use
  Company Number: IT-002147023-NVSC2022IT284033

PATIENT
  Age: 27 Year
  Sex: Male

DRUGS (1)
  1. LAMOTRIGINE [Suspect]
     Active Substance: LAMOTRIGINE
     Indication: Familial hemiplegic migraine
     Dosage: 50 MG, BID
     Route: 065

REACTIONS (2)
  - Suicidal ideation [Unknown]
  - Product use in unapproved indication [Unknown]
